FAERS Safety Report 5056249-0 (Version None)
Quarter: 2006Q2

REPORT INFORMATION
  Report Type: 
  Country: None (occurrence: None)
  Receive Date: 20060616
  Receipt Date: 20051128
  Transmission Date: 20061013
  Serious: Yes (Hospitalization, Other)
  Sender: FDA-Public Use
  Company Number: 200519826US

PATIENT
  Age: 65 Year
  Sex: Male

DRUGS (4)
  1. LANTUS [Suspect]
     Indication: DIABETES MELLITUS
     Dosage: 26 U QD
  2. NOVOLOG [Concomitant]
  3. DIABETES MEDICATIONS [Concomitant]
  4. DRUGS NOS [Concomitant]

REACTIONS (2)
  - FALL [None]
  - HYPOGLYCAEMIC COMA [None]
